FAERS Safety Report 14954148 (Version 3)
Quarter: 2021Q3

REPORT INFORMATION
  Report Type: Spontaneous
  Country: US (occurrence: US)
  Receive Date: 20180530
  Receipt Date: 20210726
  Transmission Date: 20211014
  Serious: Yes (Hospitalization)
  Sender: FDA-Public Use
  Company Number: US-EMD SERONO-7128233

PATIENT
  Age: 36 Year
  Sex: Male

DRUGS (4)
  1. HYDROCHLOROTHIAZIDE. [Suspect]
     Active Substance: HYDROCHLOROTHIAZIDE
     Indication: HYPERTENSION
     Dates: start: 2001
  2. REBIF [Suspect]
     Active Substance: INTERFERON BETA-1A
     Indication: MULTIPLE SCLEROSIS
     Dosage: PREVIOUS USE DEVICE (REBIJECT II)
     Route: 058
     Dates: start: 2004
  3. REBIF [Suspect]
     Active Substance: INTERFERON BETA-1A
     Dosage: PREVIOUSLY USED DEVICE (REBIJECT II)?REBIF PREFILLED SYRINGE
     Route: 058
     Dates: start: 20050830
  4. ATENOLOL. [Concomitant]
     Active Substance: ATENOLOL
     Indication: HYPERTENSION

REACTIONS (14)
  - Injection site erythema [Unknown]
  - Spinal osteoarthritis [Unknown]
  - Burning sensation [Unknown]
  - Muscular weakness [Unknown]
  - Injection site swelling [Unknown]
  - Injection site abscess [Unknown]
  - Blood potassium decreased [Unknown]
  - Neck pain [Unknown]
  - Paraesthesia [Unknown]
  - Injection site reaction [Unknown]
  - Blood phosphorus decreased [Unknown]
  - Injection site cellulitis [Unknown]
  - Intervertebral disc protrusion [Unknown]
  - Vertigo [Unknown]

NARRATIVE: CASE EVENT DATE: 2005
